FAERS Safety Report 5942840-3 (Version None)
Quarter: 2008Q4

REPORT INFORMATION
  Report Type: 
  Country: None (occurrence: None)
  Receive Date: 20081103
  Receipt Date: 20081017
  Transmission Date: 20090506
  Serious: Yes (Hospitalization)
  Sender: FDA-Public Use
  Company Number: 08-225

PATIENT
  Age: 46 Year
  Sex: Male

DRUGS (2)
  1. FAZACLO ODT [Suspect]
     Dosage: 800 MG DAILY PO
     Route: 048
  2. ZYPREXA [Concomitant]

REACTIONS (1)
  - PSYCHIATRIC DECOMPENSATION [None]
